FAERS Safety Report 16589109 (Version 1)
Quarter: 2019Q3

REPORT INFORMATION
  Report Type: Report from Study
  Country: DE (occurrence: DE)
  Receive Date: 20190718
  Receipt Date: 20190718
  Transmission Date: 20191004
  Serious: Yes (Death, Hospitalization, Other)
  Sender: FDA-Public Use
  Company Number: DE-AMGEN-DEUNI2019113564

PATIENT
  Age: 81 Year
  Sex: Female
  Weight: 78 kg

DRUGS (2)
  1. CARFILZOMIB [Suspect]
     Active Substance: CARFILZOMIB
     Dosage: 102 MILLIGRAM, QD
     Route: 065
     Dates: end: 20190517
  2. CARFILZOMIB [Suspect]
     Active Substance: CARFILZOMIB
     Indication: PLASMA CELL MYELOMA
     Dosage: 104 MILLIGRAM, QD
     Route: 065
     Dates: start: 20181112

REACTIONS (1)
  - Coronary artery stenosis [Fatal]

NARRATIVE: CASE EVENT DATE: 20190613
